FAERS Safety Report 9028954 (Version 1)
Quarter: 2013Q1

REPORT INFORMATION
  Report Type: Report from Study
  Country: US (occurrence: US)
  Receive Date: 20130124
  Receipt Date: 20130124
  Transmission Date: 20140127
  Serious: Yes (Hospitalization)
  Sender: FDA-Public Use
  Company Number: US-ABBOTT-13P-163-1036812-00

PATIENT
  Sex: Female
  Weight: 61.29 kg

DRUGS (17)
  1. HUMIRA PEN [Suspect]
     Indication: CROHN^S DISEASE
     Dates: start: 200912, end: 200912
  2. SYNTHROID [Concomitant]
     Indication: HYPOTHYROIDISM
  3. BENADRYL [Concomitant]
     Indication: HYPERSENSITIVITY
  4. OXYCONTIN [Concomitant]
     Indication: BACK PAIN
  5. OXYCONTIN [Concomitant]
     Indication: NEUROPATHY PERIPHERAL
  6. OXYCONTIN [Concomitant]
     Indication: PAIN
  7. TOPAMAX [Concomitant]
     Indication: PAIN
  8. ZOLOFT [Concomitant]
     Indication: DEPRESSION
  9. TRAZODONE [Concomitant]
     Indication: SLEEP DISORDER THERAPY
  10. GLUCOPHAGE [Concomitant]
     Indication: DIABETES MELLITUS
  11. MAGNESIUM OXIDE [Concomitant]
     Indication: MINERAL SUPPLEMENTATION
  12. ASPIRIN [Concomitant]
     Indication: PROPHYLAXIS
  13. VITAMIN D NOS [Concomitant]
     Indication: VITAMIN SUPPLEMENTATION
  14. REGLAN [Concomitant]
     Indication: GASTRIC DISORDER
  15. CALCIUM WITH VITAMIN D [Concomitant]
     Indication: MINERAL SUPPLEMENTATION
  16. CALCIUM WITH VITAMIN D [Concomitant]
     Indication: BONE LOSS
  17. PREVACID [Concomitant]
     Indication: GASTROOESOPHAGEAL REFLUX DISEASE

REACTIONS (8)
  - Malaise [Recovered/Resolved]
  - Headache [Recovered/Resolved]
  - Pyrexia [Recovered/Resolved]
  - Myalgia [Recovered/Resolved]
  - Mobility decreased [Recovered/Resolved]
  - Swelling [Recovered/Resolved]
  - Crohn^s disease [Recovered/Resolved]
  - Muscle spasms [Recovered/Resolved]
